FAERS Safety Report 9804395 (Version 1)
Quarter: 2014Q1

REPORT INFORMATION
  Report Type: Spontaneous
  Country: US (occurrence: None)
  Receive Date: 20140106
  Receipt Date: 20140106
  Transmission Date: 20141002
  Serious: Yes (Death)
  Sender: FDA-Public Use
  Company Number: 2013P1022302

PATIENT
  Age: 73 Year
  Sex: Male

DRUGS (1)
  1. CLINDAMYCIN [Suspect]
     Indication: PNEUMONIA ASPIRATION

REACTIONS (13)
  - Encephalopathy [None]
  - Haemoglobin decreased [None]
  - White blood cell count increased [None]
  - Neutrophil percentage increased [None]
  - Blood urea increased [None]
  - Blood sodium decreased [None]
  - Blood bicarbonate decreased [None]
  - International normalised ratio increased [None]
  - Prothrombin time prolonged [None]
  - Hepatic failure [None]
  - Acute respiratory distress syndrome [None]
  - Weaning failure [None]
  - Hepatotoxicity [None]
